FAERS Safety Report 6890749-3 (Version None)
Quarter: 2010Q3

REPORT INFORMATION
  Report Type: 
  Country: None (occurrence: None)
  Receive Date: 20100731
  Receipt Date: 20090318
  Transmission Date: 20110219
  Serious: Yes (Other)
  Sender: FDA-Public Use
  Company Number: US-PFIZER INC-2009159271

PATIENT
  Sex: Male
  Weight: 63.5 kg

DRUGS (4)
  1. LIPITOR [Suspect]
     Indication: BLOOD CHOLESTEROL INCREASED
     Dosage: 5 MG, 1X/DAY
     Dates: start: 19990101, end: 20010101
  2. LIPITOR [Suspect]
     Dosage: 10 MG, 1X/DAY
     Dates: start: 20010101, end: 20070101
  3. LIPITOR [Suspect]
     Dosage: 20 MG, 1X/DAY
     Dates: start: 20070101
  4. PROPECIA [Concomitant]
     Indication: ALOPECIA
     Dosage: UNK

REACTIONS (3)
  - AMNESIA [None]
  - BLOOD CHOLESTEROL INCREASED [None]
  - WRONG TECHNIQUE IN DRUG USAGE PROCESS [None]
